FAERS Safety Report 7542728-0 (Version None)
Quarter: 2011Q2

REPORT INFORMATION
  Report Type: 
  Country: None (occurrence: None)
  Receive Date: 20110613
  Receipt Date: 20110610
  Transmission Date: 20111010
  Serious: Yes (Hospitalization)
  Sender: FDA-Public Use
  Company Number: A0867475A

PATIENT
  Age: 56 Year
  Sex: Female

DRUGS (1)
  1. AVANDIA [Suspect]
     Indication: DIABETES MELLITUS
     Dosage: 4MG PER DAY
     Route: 048
     Dates: start: 20050331, end: 20071228

REACTIONS (9)
  - MYOCARDIAL INFARCTION [None]
  - IMPLANTABLE DEFIBRILLATOR INSERTION [None]
  - SCAR [None]
  - CORONARY ARTERIAL STENT INSERTION [None]
  - INTRA-AORTIC BALLOON PLACEMENT [None]
  - CARDIAC FAILURE CONGESTIVE [None]
  - CORONARY ARTERY BYPASS [None]
  - CARDIAC ANEURYSM [None]
  - SURGERY [None]
